FAERS Safety Report 18046700 (Version 6)
Quarter: 2020Q4

REPORT INFORMATION
  Report Type: Report from Study
  Country: BE (occurrence: BE)
  Receive Date: 20200720
  Receipt Date: 20201217
  Transmission Date: 20210113
  Serious: Yes (Hospitalization)
  Sender: FDA-Public Use
  Company Number: BE-EXELIXIS-XL18420031377

PATIENT
  Age: 56 Year
  Sex: Male
  Weight: 90 kg

DRUGS (25)
  1. CABOZANTINIB [Suspect]
     Active Substance: CABOZANTINIB
     Dosage: 60 MG, QD
     Route: 048
     Dates: start: 20200919
  2. CLEXANE [Concomitant]
     Active Substance: ENOXAPARIN SODIUM
     Dosage: 4.000IE (40 MG) /0.4 ML
     Route: 058
     Dates: start: 20200714
  3. HYDROCORTISON [Concomitant]
     Active Substance: HYDROCORTISONE
     Dosage: 20 MG, HALF CO, 2X/DAY
     Route: 048
     Dates: start: 20200724, end: 20200729
  4. COVERAM [Concomitant]
     Active Substance: AMLODIPINE\PERINDOPRIL
     Dosage: 10 MG/10 MG, 1X/DAY, 8U
     Route: 048
     Dates: start: 20200714
  5. PANTOMED [Concomitant]
     Dosage: 40 MG, 1X/DAY 8U
     Route: 048
     Dates: start: 20200714
  6. ZYRTEC [Concomitant]
     Active Substance: CETIRIZINE HYDROCHLORIDE
     Dosage: 10 MG, AS NEEDED, MAX 1X/DAY
     Route: 048
     Dates: start: 20200714
  7. L-THYROXINE [Concomitant]
     Active Substance: LEVOTHYROXINE
     Dosage: 50 MICROGRAM, 1X/DAY, 8U
     Route: 048
  8. XGEVA [Concomitant]
     Active Substance: DENOSUMAB
     Dosage: 70 MG/ML (1.7 ML)
     Route: 058
  9. CABOZANTINIB [Suspect]
     Active Substance: CABOZANTINIB
     Indication: RENAL CELL CARCINOMA
     Dosage: 60 MG, QD
     Route: 048
     Dates: start: 20200629, end: 20200713
  10. ASAFLOW [Concomitant]
     Active Substance: ASPIRIN
     Dosage: 80 MG, 1X/DAY, 8U
     Route: 048
     Dates: start: 20200714
  11. DUROGESIC [Concomitant]
     Active Substance: FENTANYL
     Dosage: 7200 MCG, 1X/3 DAYS
     Route: 062
     Dates: start: 20200714
  12. AMLODIPINE [Concomitant]
     Active Substance: AMLODIPINE BESYLATE
     Dosage: 5MG, 1X/D, 8U
     Route: 048
  13. LAXIDO [Concomitant]
     Active Substance: POLYETHYLENE GLYCOL 3350\POTASSIUM CHLORIDE\SODIUM BICARBONATE\SODIUM CHLORIDE
     Dosage: 1 SACHET, 1X/D 8U
     Route: 048
  14. B MAGNUM [Concomitant]
     Dosage: 450 MG, 1X/D
     Route: 048
  15. INUVAIR [Concomitant]
     Active Substance: BECLOMETHASONE DIPROPIONATE\FORMOTEROL FUMARATE
     Dosage: 100/6UG/DO 12OD NEXT, 1X/DAY, 8U
     Dates: start: 20200714
  16. CABOZANTINIB [Suspect]
     Active Substance: CABOZANTINIB
     Dosage: 60 MG, QD
     Route: 048
     Dates: start: 20200727, end: 20200908
  17. D-CURE [Concomitant]
     Active Substance: CHOLECALCIFEROL
     Dosage: 25000 IU, 2X/MONTH
     Route: 048
  18. OXYNORM [Concomitant]
     Active Substance: OXYCODONE HYDROCHLORIDE
     Dosage: 20 MG (AS NEEDED, MAX 6X/DAY)
     Route: 048
     Dates: start: 20200714
  19. L-THYROXINE [Concomitant]
     Active Substance: LEVOTHYROXINE
     Dosage: 75 MICROGRAM, 1X/DAY, 8U
     Route: 048
  20. ULTRA K [Concomitant]
     Dosage: 312 MICROGRAM/ML, 3X/DAY, 20 ML
     Route: 048
     Dates: end: 20200729
  21. STEOVIT FORTE [Concomitant]
     Dosage: 2.5G/800IE (1000MG CA), 1X/D-8U
     Route: 048
     Dates: start: 20200714
  22. LITICAN [Concomitant]
     Active Substance: ALIZAPRIDE HYDROCHLORIDE
     Dosage: 50 MG, THRICE PER DAY (TID), 2 CO^S-8U, 12 U AND 17 U
     Route: 048
  23. LITICAN [Concomitant]
     Active Substance: ALIZAPRIDE HYDROCHLORIDE
     Dosage: 50 MG, AS NEEDED, MAX 6X/DAY
     Route: 048
  24. MOVICOL [Concomitant]
     Active Substance: POLYETHYLENE GLYCOL 3350\POTASSIUM CHLORIDE\SODIUM BICARBONATE\SODIUM CHLORIDE
     Dosage: 25 ML, QD (1X/DAY, 8U)
     Route: 048
     Dates: start: 20200714
  25. ULTRA K [Concomitant]
     Dosage: 312 MICROGRAM/ML, 2X/DAY, 10 ML ON DIARRHEA DAYS
     Route: 048

REACTIONS (12)
  - Muscle spasms [Recovered/Resolved]
  - Hypertension [Recovered/Resolved]
  - Anal inflammation [Recovered/Resolved]
  - Dry mouth [Not Recovered/Not Resolved]
  - Wound complication [Recovered/Resolved]
  - Decreased appetite [Not Recovered/Not Resolved]
  - Diarrhoea [Recovered/Resolved]
  - Hypophosphataemia [Not Recovered/Not Resolved]
  - Sepsis [Recovered/Resolved]
  - Fatigue [Not Recovered/Not Resolved]
  - Wound complication [Not Recovered/Not Resolved]
  - Hypomagnesaemia [Not Recovered/Not Resolved]

NARRATIVE: CASE EVENT DATE: 20200714
